FAERS Safety Report 5827641-9 (Version None)
Quarter: 2008Q2

REPORT INFORMATION
  Report Type: 
  Country: None (occurrence: None)
  Receive Date: 20080601
  Receipt Date: 20080212
  Transmission Date: 20081010
  Serious: No
  Sender: FDA-Public Use
  Company Number: US200802002807

PATIENT
  Age: 40 Year
  Sex: Female

DRUGS (2)
  1. BYETTA [Suspect]
     Indication: TYPE 2 DIABETES MELLITUS
     Dosage: 10 UG, 2/D, SUBCUTANEOUS
     Route: 058
     Dates: start: 20070101
  2. EXENATIDE 10MCG PEN,DISPOSABLE DEVICE (EXENATIDE PEN (10MCG)) PEN,DISP [Concomitant]

REACTIONS (2)
  - DECREASED APPETITE [None]
  - INCREASED APPETITE [None]
